FAERS Safety Report 13043035 (Version 1)
Quarter: 2016Q4

REPORT INFORMATION
  Report Type: Spontaneous
  Country: US (occurrence: US)
  Receive Date: 20161219
  Receipt Date: 20161219
  Transmission Date: 20170207
  Serious: Yes (Other)
  Sender: FDA-Public Use
  Company Number: US-BEH-2016076145

PATIENT
  Sex: Female
  Weight: 47.62 kg

DRUGS (25)
  1. ZEMAIRA [Suspect]
     Active Substance: .ALPHA.1-PROTEINASE INHIBITOR HUMAN
     Indication: ALPHA-1 ANTI-TRYPSIN DEFICIENCY
     Dosage: 90 MG/KG, UNK
     Route: 042
     Dates: start: 20061228
  2. AZITHROMYCIN ANHYDROUS. [Concomitant]
     Active Substance: AZITHROMYCIN ANHYDROUS
  3. XANAX [Concomitant]
     Active Substance: ALPRAZOLAM
  4. EPIPEN [Concomitant]
     Active Substance: EPINEPHRINE
  5. ALBUTEROL                          /00139501/ [Concomitant]
     Active Substance: ALBUTEROL
  6. LMX                                /00033401/ [Concomitant]
  7. PREDNISONE. [Concomitant]
     Active Substance: PREDNISONE
  8. MUCINEX D [Concomitant]
     Active Substance: GUAIFENESIN\PSEUDOEPHEDRINE HYDROCHLORIDE
  9. PREVACID [Concomitant]
     Active Substance: LANSOPRAZOLE
  10. HYDROCODONE                        /00060002/ [Concomitant]
     Active Substance: HYDROCODONE
  11. ZEMAIRA [Suspect]
     Active Substance: .ALPHA.1-PROTEINASE INHIBITOR HUMAN
     Dosage: 90 MG/KG, UNK
     Route: 042
  12. SPIRIVA [Concomitant]
     Active Substance: TIOTROPIUM BROMIDE MONOHYDRATE
  13. DIPHENHYDRAMINE. [Concomitant]
     Active Substance: DIPHENHYDRAMINE
  14. DILTIAZEM. [Concomitant]
     Active Substance: DILTIAZEM
  15. LEXAPRO [Concomitant]
     Active Substance: ESCITALOPRAM OXALATE
  16. KLOR-CON [Concomitant]
     Active Substance: POTASSIUM CHLORIDE
  17. BUPROPION. [Concomitant]
     Active Substance: BUPROPION
  18. SODIUM CHLORIDE. [Concomitant]
     Active Substance: SODIUM CHLORIDE
  19. PERCOCET                           /00446701/ [Concomitant]
     Active Substance: ACETAMINOPHEN\OXYCODONE HYDROCHLORIDE\OXYCODONE TEREPHTHALATE
  20. OXYGEN. [Concomitant]
     Active Substance: OXYGEN
  21. ASPIRIN (E.C.) [Concomitant]
     Active Substance: ASPIRIN
  22. ALPRAZOLAM. [Concomitant]
     Active Substance: ALPRAZOLAM
  23. MULTIVITAMIN                       /00097801/ [Concomitant]
     Active Substance: VITAMINS
  24. BENZONATATE. [Concomitant]
     Active Substance: BENZONATATE
  25. CALCIUM+D3 [Concomitant]

REACTIONS (1)
  - Lung disorder [Unknown]
